FAERS Safety Report 24714221 (Version 2)
Quarter: 2024Q4

REPORT INFORMATION
  Report Type: Report from Study
  Country: CN (occurrence: CN)
  Receive Date: 20241209
  Receipt Date: 20241209
  Transmission Date: 20250114
  Serious: Yes (Hospitalization)
  Sender: ALEXION PHARMACEUTICALS
  Company Number: CN-AstraZeneca-2024A099851

PATIENT
  Age: 17 Year

DRUGS (24)
  1. SELUMETINIB [Suspect]
     Active Substance: SELUMETINIB
     Indication: Neurofibromatosis
     Dosage: 35 MILLIGRAM, BID
     Route: 048
  2. SELUMETINIB [Suspect]
     Active Substance: SELUMETINIB
     Dosage: 35 MILLIGRAM, BID
  3. SELUMETINIB [Suspect]
     Active Substance: SELUMETINIB
     Dosage: 35 MILLIGRAM, BID
     Route: 048
  4. SELUMETINIB [Suspect]
     Active Substance: SELUMETINIB
     Dosage: 35 MILLIGRAM, BID
  5. SELUMETINIB [Suspect]
     Active Substance: SELUMETINIB
     Dosage: UNK MILLIGRAM, BID
     Route: 048
  6. SELUMETINIB [Suspect]
     Active Substance: SELUMETINIB
     Dosage: UNK MILLIGRAM, BID
  7. SELUMETINIB [Suspect]
     Active Substance: SELUMETINIB
     Dosage: UNK MILLIGRAM, BID
     Route: 048
  8. SELUMETINIB [Suspect]
     Active Substance: SELUMETINIB
     Dosage: UNK MILLIGRAM, BID
  9. LEVOCETIRIZINE HYDROCHLORIDE [Concomitant]
     Active Substance: LEVOCETIRIZINE HYDROCHLORIDE
     Dosage: UNK MILLIGRAM, QD
     Route: 065
  10. LEVOCETIRIZINE HYDROCHLORIDE [Concomitant]
     Active Substance: LEVOCETIRIZINE HYDROCHLORIDE
     Dosage: UNK MILLIGRAM, QD
     Route: 065
  11. LEVOCETIRIZINE HYDROCHLORIDE [Concomitant]
     Active Substance: LEVOCETIRIZINE HYDROCHLORIDE
     Dosage: UNK MILLIGRAM, QD
     Route: 065
  12. LEVOCETIRIZINE HYDROCHLORIDE [Concomitant]
     Active Substance: LEVOCETIRIZINE HYDROCHLORIDE
     Dosage: UNK MILLIGRAM, QD
     Route: 065
  13. HYDROCORTISONE BUTYRATE [Concomitant]
     Active Substance: HYDROCORTISONE BUTYRATE
     Dosage: UNK GRAM, BID
     Route: 065
  14. HYDROCORTISONE BUTYRATE [Concomitant]
     Active Substance: HYDROCORTISONE BUTYRATE
     Dosage: UNK GRAM, BID
     Route: 065
  15. HYDROCORTISONE BUTYRATE [Concomitant]
     Active Substance: HYDROCORTISONE BUTYRATE
     Dosage: UNK GRAM, BID
     Route: 065
  16. HYDROCORTISONE BUTYRATE [Concomitant]
     Active Substance: HYDROCORTISONE BUTYRATE
     Dosage: UNK GRAM, BID
     Route: 065
  17. CEFIXIME [Concomitant]
     Active Substance: CEFIXIME
     Dosage: UNK GRAM, BID
     Route: 065
  18. CEFIXIME [Concomitant]
     Active Substance: CEFIXIME
     Dosage: UNK GRAM, BID
     Route: 065
  19. CEFIXIME [Concomitant]
     Active Substance: CEFIXIME
     Dosage: UNK GRAM, BID
     Route: 065
  20. CEFIXIME [Concomitant]
     Active Substance: CEFIXIME
     Dosage: UNK GRAM, BID
     Route: 065
  21. LORATADINE [Concomitant]
     Active Substance: LORATADINE
     Dosage: UNK MILLIGRAM, QD
     Route: 065
  22. LORATADINE [Concomitant]
     Active Substance: LORATADINE
     Dosage: UNK MILLIGRAM, QD
     Route: 065
  23. LORATADINE [Concomitant]
     Active Substance: LORATADINE
     Dosage: UNK MILLIGRAM, QD
     Route: 065
  24. LORATADINE [Concomitant]
     Active Substance: LORATADINE
     Dosage: UNK MILLIGRAM, QD
     Route: 065

REACTIONS (1)
  - Drug eruption [Recovered/Resolved]
